FAERS Safety Report 18943551 (Version 1)
Quarter: 2021Q1

REPORT INFORMATION
  Report Type: Spontaneous
  Country: US (occurrence: US)
  Receive Date: 20210225
  Receipt Date: 20210225
  Transmission Date: 20210420
  Serious: Yes (Hospitalization)
  Sender: FDA-Public Use
  Company Number: None

PATIENT
  Age: 72 Year
  Sex: Male
  Weight: 112 kg

DRUGS (1)
  1. BAMLANIVIMAB. [Suspect]
     Active Substance: BAMLANIVIMAB

REACTIONS (5)
  - Seizure [None]
  - Dizziness [None]
  - Dystonia [None]
  - Vision blurred [None]
  - Hyperhidrosis [None]

NARRATIVE: CASE EVENT DATE: 20210225
